FAERS Safety Report 7880348-9 (Version None)
Quarter: 2011Q4

REPORT INFORMATION
  Report Type: 
  Country: None (occurrence: None)
  Receive Date: 20111101
  Receipt Date: 20111026
  Transmission Date: 20120403
  Serious: Yes (Hospitalization, Congenital Anomaly, Other)
  Sender: FDA-Public Use
  Company Number: US-PFIZER INC-2011151171

PATIENT
  Sex: Male
  Weight: 3 kg

DRUGS (10)
  1. ZOLOFT [Suspect]
     Dosage: 100 MG TWO TABLETS DAILY
     Route: 064
     Dates: start: 20010125
  2. ZOLOFT [Suspect]
     Indication: ANXIETY
     Dosage: 25 MG DAILY
     Route: 064
     Dates: start: 19991208, end: 19991201
  3. ZOLOFT [Suspect]
     Dosage: 150 MG DAILY
     Route: 064
     Dates: start: 20000615
  4. ZOLOFT [Suspect]
     Dosage: 100 MG DAILY
     Route: 064
     Dates: start: 20000601
  5. ZOLOFT [Suspect]
     Dosage: 50 MG DAILY
     Route: 064
     Dates: start: 20000208
  6. ZOLOFT [Suspect]
     Dosage: 100 MG, 2X/DAY
     Route: 064
     Dates: start: 20000717
  7. ZOLOFT [Suspect]
     Dosage: 100 MG ONE AND HALF TABLET DAILY
     Route: 064
     Dates: start: 20001101
  8. ZOLOFT [Suspect]
     Dosage: 100 MG DAILY
     Route: 064
     Dates: start: 20000316
  9. ZOLOFT [Suspect]
     Dosage: 100 MG ONE AND HALF TABLET AT BED TIME
     Route: 064
     Dates: start: 20000418
  10. ZOLOFT [Suspect]
     Indication: DEPRESSION
     Dosage: 50 MG DAILY
     Route: 064
     Dates: start: 19991223

REACTIONS (8)
  - CLEFT LIP [None]
  - DENTAL CARIES [None]
  - ORAL CANDIDIASIS [None]
  - JAUNDICE [None]
  - SLEEP DISORDER [None]
  - STREPTOCOCCAL INFECTION [None]
  - MATERNAL EXPOSURE DURING PREGNANCY [None]
  - CLEFT PALATE [None]
